FAERS Safety Report 4733300-6 (Version None)
Quarter: 2005Q3

REPORT INFORMATION
  Report Type: 
  Country: None (occurrence: None)
  Receive Date: 20050721
  Receipt Date: 20050516
  Transmission Date: 20060218
  Serious: No
  Sender: FDA-Public Use
  Company Number: 2005SP000817

PATIENT
  Age: 56 Year
  Sex: Male

DRUGS (5)
  1. LUNESTA [Suspect]
     Indication: INSOMNIA
     Dosage: 3 MG;HS;ORAL
     Route: 048
     Dates: start: 20050512
  2. LOTREL [Concomitant]
  3. PRAVACHOL [Concomitant]
  4. GLUCOVANCE [Concomitant]
  5. VALIUM [Concomitant]

REACTIONS (1)
  - DYSGEUSIA [None]
